FAERS Safety Report 11862011 (Version 1)
Quarter: 2015Q4

REPORT INFORMATION
  Report Type: Spontaneous
  Country: US (occurrence: None)
  Receive Date: 20151222
  Receipt Date: 20151222
  Transmission Date: 20160305
  Serious: Yes (Other)
  Sender: FDA-Public Use
  Company Number: None

PATIENT
  Age: 34 Year
  Sex: Female
  Weight: 63.5 kg

DRUGS (1)
  1. GABAPENTIN CAPSULES 400MG PFIZER [Suspect]
     Active Substance: GABAPENTIN
     Route: 048

REACTIONS (2)
  - Nausea [None]
  - Ulcer haemorrhage [None]

NARRATIVE: CASE EVENT DATE: 20151118
